FAERS Safety Report 4332290-8 (Version None)
Quarter: 2004Q1

REPORT INFORMATION
  Report Type: 
  Country: None (occurrence: None)
  Receive Date: 20040331
  Receipt Date: 20040316
  Transmission Date: 20041129
  Serious: Yes (Life-Threatening)
  Sender: FDA-Public Use
  Company Number: S04-DEN-01315-01

PATIENT
  Age: 50 Year
  Sex: Male

DRUGS (2)
  1. CITALOPRAM HYDROBROMIDE [Suspect]
     Indication: DEPRESSION
     Dosage: 20 MG QD PO
     Route: 048
     Dates: start: 20030613, end: 20031127
  2. ALCOHOL [Suspect]

REACTIONS (3)
  - ALCOHOL INTERACTION [None]
  - AMNESIA [None]
  - SELF INJURIOUS BEHAVIOUR [None]
